FAERS Safety Report 8288373-3 (Version None)
Quarter: 2012Q2

REPORT INFORMATION
  Report Type: 
  Country: None (occurrence: None)
  Receive Date: 20120416
  Receipt Date: 20120403
  Transmission Date: 20120825
  Serious: Yes (Congenital Anomaly)
  Sender: FDA-Public Use
  Company Number: DE-FRI-1000029756

PATIENT
  Sex: Male
  Weight: 4.01 kg

DRUGS (3)
  1. ESCITALOPRAM [Suspect]
     Dosage: 10 MG
     Route: 064
  2. FEMIBION [Concomitant]
     Dosage: 0.4 MG
     Route: 064
  3. ESCITALOPRAM [Suspect]
     Dosage: 20 MG
     Route: 064
     Dates: end: 20110907

REACTIONS (2)
  - NAEVUS FLAMMEUS [None]
  - FOETAL EXPOSURE DURING PREGNANCY [None]
